FAERS Safety Report 8414950-2 (Version None)
Quarter: 2012Q2

REPORT INFORMATION
  Report Type: 
  Country: None (occurrence: None)
  Receive Date: 20120601
  Receipt Date: 20120601
  Transmission Date: 20120825
  Serious: Yes (Other)
  Sender: FDA-Public Use
  Company Number: None

PATIENT
  Age: 71 Year
  Sex: Female
  Weight: 72.7 kg

DRUGS (4)
  1. NUCYNTA [Suspect]
     Indication: PAIN IN EXTREMITY
     Dosage: 50 MG 6 HOURS TABLET
     Dates: start: 20120417
  2. NUCYNTA [Suspect]
     Indication: MUSCULOSKELETAL PAIN
     Dosage: 50 MG 6 HOURS TABLET
     Dates: start: 20120417
  3. NUCYNTA [Suspect]
     Indication: PAIN IN EXTREMITY
     Dosage: 50 MG 6 HOURS TABLET
     Dates: start: 20120416
  4. NUCYNTA [Suspect]
     Indication: MUSCULOSKELETAL PAIN
     Dosage: 50 MG 6 HOURS TABLET
     Dates: start: 20120416

REACTIONS (6)
  - FEAR [None]
  - BRADYPHRENIA [None]
  - BALANCE DISORDER [None]
  - FEELING ABNORMAL [None]
  - ABNORMAL DREAMS [None]
  - WHEEZING [None]
